FAERS Safety Report 19077331 (Version 1)
Quarter: 2021Q1

REPORT INFORMATION
  Report Type: Spontaneous
  Country: US (occurrence: US)
  Receive Date: 20210331
  Receipt Date: 20210331
  Transmission Date: 20210420
  Serious: Yes (Life-Threatening, Hospitalization, Disabling)
  Sender: FDA-Public Use
  Company Number: None

PATIENT
  Age: 43 Year
  Sex: Female
  Weight: 63 kg

DRUGS (13)
  1. AMETHIA [Suspect]
     Active Substance: ETHINYL ESTRADIOL\LEVONORGESTREL
  2. ASHLYNA [Suspect]
     Active Substance: ETHINYL ESTRADIOL\LEVONORGESTREL
  3. HYDROMORPHONE [Concomitant]
     Active Substance: HYDROMORPHONE
  4. GABAPENTIN. [Concomitant]
     Active Substance: GABAPENTIN
  5. LEVOTHYROXINE. [Concomitant]
     Active Substance: LEVOTHYROXINE
  6. MULTIVITAMIN [Concomitant]
     Active Substance: VITAMINS
  7. SEASONALE [Suspect]
     Active Substance: ETHINYL ESTRADIOL\LEVONORGESTREL
     Indication: DYSMENORRHOEA
     Dosage: ?          QUANTITY:1 TABLET(S);?
     Dates: start: 20040101, end: 20180415
  8. QUASENSE [Suspect]
     Active Substance: ETHINYL ESTRADIOL\LEVONORGESTREL
  9. LANSOPROZOLE [Concomitant]
     Active Substance: LANSOPRAZOLE
  10. SEASONIQUE [Suspect]
     Active Substance: ETHINYL ESTRADIOL\LEVONORGESTREL
  11. ATEZOLIZUMAB/AVASTIN [Concomitant]
  12. ALPRAZOLAM. [Concomitant]
     Active Substance: ALPRAZOLAM
  13. VITAMIN D3 [Concomitant]
     Active Substance: CHOLECALCIFEROL

REACTIONS (16)
  - Rhinalgia [None]
  - Nasal discomfort [None]
  - Malignant mesenteric neoplasm [None]
  - Neoplasm malignant [None]
  - Injury [None]
  - Hepatocellular carcinoma [None]
  - Tumour rupture [None]
  - Recurrent cancer [None]
  - Emotional distress [None]
  - Sinus congestion [None]
  - Metastases to lung [None]
  - Metastases to lymph nodes [None]
  - Nasal septum perforation [None]
  - Metastasis [None]
  - Tongue ulceration [None]
  - Nasal septum ulceration [None]

NARRATIVE: CASE EVENT DATE: 20180415
